FAERS Safety Report 21411623 (Version 1)
Quarter: 2022Q4

REPORT INFORMATION
  Report Type: Spontaneous
  Country: AT (occurrence: AT)
  Receive Date: 20221005
  Receipt Date: 20221005
  Transmission Date: 20230112
  Serious: No
  Sender: FDA-Public Use
  Company Number: AT-CHEMOCENTRYX, INC.-2022ATCCXI0337

PATIENT

DRUGS (6)
  1. TAVNEOS [Suspect]
     Active Substance: AVACOPAN
     Indication: Anti-neutrophil cytoplasmic antibody positive vasculitis
     Dosage: 3-0-3 (30 MG,2 IN 1 D)
     Route: 048
  2. SULFAMETHOXAZOLE\TRIMETHOPRIM [Concomitant]
     Active Substance: SULFAMETHOXAZOLE\TRIMETHOPRIM
     Indication: Product used for unknown indication
     Dosage: (3 IN 1 D)
     Route: 048
  3. CITALOPRAM [Concomitant]
     Active Substance: CITALOPRAM HYDROBROMIDE
     Indication: Product used for unknown indication
     Dosage: (1 IN 1 D)
     Route: 048
  4. MIRTAZAPINE [Concomitant]
     Active Substance: MIRTAZAPINE
     Indication: Product used for unknown indication
     Dosage: (1 IN 1 D)
  5. BERODUAL HFA [FENOTEROL HYDROBROMIDE;IPRATROPIUM BROMIDE MONOHYDRATE] [Concomitant]
     Indication: Product used for unknown indication
     Dosage: (AS REQUIRED)
  6. BECLOMETHASONE DIPROPIONATE\FORMOTEROL FUMARATE\GLYCOPYRROLATE [Concomitant]
     Active Substance: BECLOMETHASONE DIPROPIONATE\FORMOTEROL FUMARATE\GLYCOPYRROLATE
     Indication: Product used for unknown indication
     Dosage: 2 INHALATIONS (2 DOSAGE FORMS,2 IN 1 D)

REACTIONS (2)
  - Hirsutism [Unknown]
  - Muscle contractions involuntary [Unknown]
